FAERS Safety Report 8802594 (Version 2)
Quarter: 2013Q1

REPORT INFORMATION
  Report Type: Spontaneous
  Country: GB (occurrence: GB)
  Receive Date: 20120921
  Receipt Date: 20130311
  Transmission Date: 20140127
  Serious: Yes (Other)
  Sender: FDA-Public Use
  Company Number: PHHY2012GB080309

PATIENT
  Age: 67 Year
  Sex: Female

DRUGS (4)
  1. METHOTREXATE [Suspect]
     Indication: POLYCHONDRITIS
  2. METHOTREXATE [Suspect]
     Indication: IMMUNOSUPPRESSION
  3. PREDNISOLONE [Suspect]
     Indication: POLYCHONDRITIS
  4. PREDNISOLONE [Suspect]
     Indication: IMMUNOSUPPRESSION

REACTIONS (5)
  - Mycobacterium chelonae infection [Recovered/Resolved]
  - Erythema nodosum [Recovered/Resolved]
  - Nodule [Recovered/Resolved]
  - Granuloma [Recovered/Resolved]
  - Arthralgia [Recovered/Resolved]
